FAERS Safety Report 9837872 (Version 1)
Quarter: 2013Q4

REPORT INFORMATION
  Report Type: Spontaneous
  Country: US (occurrence: None)
  Receive Date: 20131205
  Receipt Date: 20131205
  Transmission Date: 20140711
  Serious: Yes (Other)
  Sender: FDA-Public Use
  Company Number: 163-POMAL-13103971

PATIENT
  Age: 72 Year
  Sex: Male

DRUGS (2)
  1. POMALYST [Suspect]
     Indication: LYMPHOMA
     Dosage: 2 MG, 2 IN 28 D, PO
     Route: 048
     Dates: start: 20130830
  2. CYCLOPHOSPHAMIDE (CYCLOPHOSPHAMIDE) (50 MILLIGRAM, TABLETS) [Concomitant]

REACTIONS (1)
  - Abdominal pain [None]
